FAERS Safety Report 6657045-0 (Version None)
Quarter: 2010Q1

REPORT INFORMATION
  Report Type: 
  Country: None (occurrence: None)
  Receive Date: 20100329
  Receipt Date: 20100329
  Transmission Date: 20100710
  Serious: Yes (Other)
  Sender: FDA-Public Use
  Company Number: None

PATIENT
  Sex: Female
  Weight: 150 kg

DRUGS (7)
  1. CITALOPRAM HYDROBROMIDE [Suspect]
     Indication: ANXIETY
     Dosage: 80 MILLEGRAMS ONCE A DAY ORAL
     Route: 048
     Dates: start: 20050101, end: 20090101
  2. CITALOPRAM HYDROBROMIDE [Suspect]
     Indication: DEPRESSION
     Dosage: 80 MILLEGRAMS ONCE A DAY ORAL
     Route: 048
     Dates: start: 20050101, end: 20090101
  3. CITALOPRAM HYDROBROMIDE [Suspect]
     Indication: OBSESSIVE-COMPULSIVE DISORDER
     Dosage: 80 MILLEGRAMS ONCE A DAY ORAL
     Route: 048
     Dates: start: 20050101, end: 20090101
  4. CITALOPRAM HYDROBROMIDE [Suspect]
     Indication: POST-TRAUMATIC STRESS DISORDER
     Dosage: 80 MILLEGRAMS ONCE A DAY ORAL
     Route: 048
     Dates: start: 20050101, end: 20090101
  5. SERTRALINE HCL [Suspect]
     Indication: ANXIETY
     Dosage: 200 MILLEGRAMS ONCE A DAY ORAL
     Route: 048
     Dates: start: 20050101, end: 20090101
  6. SERTRALINE HCL [Suspect]
     Indication: DEPRESSION
     Dosage: 200 MILLEGRAMS ONCE A DAY ORAL
     Route: 048
     Dates: start: 20050101, end: 20090101
  7. SERTRALINE HCL [Suspect]
     Indication: OBSESSIVE-COMPULSIVE DISORDER
     Dosage: 200 MILLEGRAMS ONCE A DAY ORAL
     Route: 048
     Dates: start: 20050101, end: 20090101

REACTIONS (2)
  - NO THERAPEUTIC RESPONSE [None]
  - PRODUCT SUBSTITUTION ISSUE [None]
